FAERS Safety Report 4296630-0 (Version None)
Quarter: 2004Q1

REPORT INFORMATION
  Report Type: 
  Country: None (occurrence: None)
  Receive Date: 20040126
  Receipt Date: 20031211
  Transmission Date: 20041129
  Serious: Yes (Other)
  Sender: FDA-Public Use
  Company Number: 354041

PATIENT
  Sex: Male

DRUGS (1)
  1. VALCYTE [Suspect]
     Dosage: 450 MG DAILY ORAL
     Route: 048

REACTIONS (1)
  - CYTOMEGALOVIRUS INFECTION [None]
